FAERS Safety Report 8111280 (Version 5)
Quarter: 2014Q3

REPORT INFORMATION
  Report Type: Spontaneous
  Country: US (occurrence: US)
  Receive Date: 20110829
  Receipt Date: 20140718
  Transmission Date: 20150326
  Serious: Yes (Hospitalization)
  Sender: FDA-Public Use
  Company Number: US-GLAXOSMITHKLINE-A0878761A

PATIENT
  Sex: Female
  Weight: 134.1 kg

DRUGS (10)
  1. LIPITOR [Concomitant]
     Active Substance: ATORVASTATIN CALCIUM
  2. COZAAR [Concomitant]
     Active Substance: LOSARTAN POTASSIUM
  3. METFORMIN [Concomitant]
     Active Substance: METFORMIN HYDROCHLORIDE
  4. ALBUTEROL. [Concomitant]
     Active Substance: ALBUTEROL
  5. GLIPIZIDE. [Concomitant]
     Active Substance: GLIPIZIDE
  6. ATENOLOL. [Concomitant]
     Active Substance: ATENOLOL
  7. PROAIR HFA [Concomitant]
     Active Substance: ALBUTEROL SULFATE
  8. SINGULAIR [Concomitant]
     Active Substance: MONTELUKAST SODIUM
  9. AVANDAMET [Suspect]
     Active Substance: METFORMIN HYDROCHLORIDE\ROSIGLITAZONE MALEATE
     Indication: DIABETES MELLITUS
     Route: 048
     Dates: start: 200403, end: 200502
  10. AVANDIA [Suspect]
     Active Substance: ROSIGLITAZONE MALEATE
     Indication: DIABETES MELLITUS
     Dosage: 4MG PER DAY
     Route: 048
     Dates: start: 200505, end: 2010

REACTIONS (7)
  - Cardiac arrest [Unknown]
  - Fluid retention [Unknown]
  - Coronary artery disease [Unknown]
  - Cerebrovascular accident [Unknown]
  - Heart injury [Unknown]
  - Fluid overload [Unknown]
  - Coronary artery bypass [Unknown]
